FAERS Safety Report 4463366-2 (Version None)
Quarter: 2004Q3

REPORT INFORMATION
  Report Type: 
  Country: None (occurrence: None)
  Receive Date: 20040928
  Receipt Date: 20040915
  Transmission Date: 20050211
  Serious: Yes (Hospitalization)
  Sender: FDA-Public Use
  Company Number: 2004233502SE

PATIENT
  Age: 43 Year
  Sex: Female

DRUGS (4)
  1. EPIRUBICIN HCL [Suspect]
     Indication: BREAST CANCER
     Dosage: 194 MG, CYCLIC
     Dates: start: 20040504, end: 20040819
  2. FLUOROURACIL [Suspect]
     Indication: BREAST CANCER
     Dosage: 970 MG, CYCLIC
     Dates: start: 20040504, end: 20040819
  3. CYCLOPHOSPHAMIDE [Suspect]
     Indication: BREAST CANCER
     Dosage: 1940 MG, CYCLIC
  4. CIPROXIN [Concomitant]

REACTIONS (1)
  - DIARRHOEA [None]
